FAERS Safety Report 24693425 (Version 1)
Quarter: 2024Q4

REPORT INFORMATION
  Report Type: Spontaneous
  Country: KR (occurrence: KR)
  Receive Date: 20241203
  Receipt Date: 20241203
  Transmission Date: 20250115
  Serious: Yes (Hospitalization)
  Sender: TAKEDA
  Company Number: KR-TAKEDA-2024TUS118621

PATIENT
  Age: 64 Year
  Sex: Male

DRUGS (8)
  1. ADVATE [Suspect]
     Active Substance: ANTIHEMOPHILIC FACTOR, HUMAN RECOMBINANT
     Indication: Haemophilia
     Dosage: UNK UNK, 2/MONTH
  2. ADVATE [Suspect]
     Active Substance: ANTIHEMOPHILIC FACTOR, HUMAN RECOMBINANT
  3. ADVATE [Suspect]
     Active Substance: ANTIHEMOPHILIC FACTOR, HUMAN RECOMBINANT
  4. COZAAR [Concomitant]
     Active Substance: LOSARTAN POTASSIUM
  5. LIPITOR [Concomitant]
     Active Substance: ATORVASTATIN CALCIUM
  6. Candedipine [Concomitant]
     Dosage: UNK
  7. Bicarbonate sodium daewon [Concomitant]
  8. Feroba you sr [Concomitant]

REACTIONS (3)
  - Mass [Unknown]
  - Arthritis [Unknown]
  - Inappropriate schedule of product administration [Unknown]
